FAERS Safety Report 4512841-0 (Version None)
Quarter: 2004Q4

REPORT INFORMATION
  Report Type: 
  Country: None (occurrence: None)
  Receive Date: 20041119
  Receipt Date: 20041119
  Transmission Date: 20050328
  Serious: No
  Sender: FDA-Public Use
  Company Number: None

PATIENT
  Sex: Female
  Weight: 59.4212 kg

DRUGS (1)
  1. ADVAIR DISKUS 250/50 [Suspect]
     Indication: ASTHMA
     Dosage: 1 INHALATION 2X A DAY
     Route: 055
     Dates: start: 20040818, end: 20041117

REACTIONS (16)
  - ABDOMINAL PAIN UPPER [None]
  - ANXIETY [None]
  - GASTROOESOPHAGEAL REFLUX DISEASE [None]
  - GINGIVAL BLEEDING [None]
  - HEADACHE [None]
  - MENSTRUATION IRREGULAR [None]
  - MOUTH HAEMORRHAGE [None]
  - MUSCLE CRAMP [None]
  - NAUSEA [None]
  - ORAL MUCOSAL BLISTERING [None]
  - PALPITATIONS [None]
  - PHARYNGOLARYNGEAL PAIN [None]
  - SKIN DISCOLOURATION [None]
  - THIRST [None]
  - VISION BLURRED [None]
  - WEIGHT INCREASED [None]
